FAERS Safety Report 8103125-2 (Version None)
Quarter: 2012Q1

REPORT INFORMATION
  Report Type: 
  Country: None (occurrence: None)
  Receive Date: 20120201
  Receipt Date: 20120120
  Transmission Date: 20120608
  Serious: Yes (Hospitalization)
  Sender: FDA-Public Use
  Company Number: US-ACTELION-A-NJ2008-19219

PATIENT

DRUGS (6)
  1. PANCRELIPASE [Concomitant]
  2. OXYGEN [Concomitant]
  3. TRACLEER [Suspect]
     Indication: PULMONARY ARTERIAL HYPERTENSION
     Dosage: UNK
     Route: 048
     Dates: start: 20021209
  4. COUMADIN [Concomitant]
  5. CALCIUM CHANNEL BLOCKERS [Concomitant]
  6. REVATIO [Concomitant]

REACTIONS (13)
  - DIABETES MELLITUS INADEQUATE CONTROL [None]
  - DRUG DOSE OMISSION [None]
  - HEADACHE [None]
  - HYPERGLYCAEMIC HYPEROSMOLAR NONKETOTIC SYNDROME [None]
  - DISTURBANCE IN ATTENTION [None]
  - DEHYDRATION [None]
  - BLOOD GLUCOSE INCREASED [None]
  - SYNCOPE [None]
  - RENAL FAILURE [None]
  - FATIGUE [None]
  - DISORIENTATION [None]
  - RECTAL HAEMORRHAGE [None]
  - VAGINAL HAEMORRHAGE [None]
